FAERS Safety Report 14547621 (Version 1)
Quarter: 2018Q1

REPORT INFORMATION
  Report Type: Spontaneous
  Country: US (occurrence: US)
  Receive Date: 20180219
  Receipt Date: 20180219
  Transmission Date: 20180509
  Serious: No
  Sender: FDA-Public Use
  Company Number: US-MIKART, INC.-2042235

PATIENT
  Age: 71 Year
  Sex: Female
  Weight: 75.28 kg

DRUGS (6)
  1. TIMOPTIC [Concomitant]
     Active Substance: TIMOLOL MALEATE
  2. TRAVATAN [Concomitant]
     Active Substance: TRAVOPROST
  3. METHAZOLAMIDE. [Suspect]
     Active Substance: METHAZOLAMIDE
     Indication: GLAUCOMA
     Route: 048
     Dates: start: 201712, end: 20180118
  4. VITAMINS (NOT SPECIFIED) [Concomitant]
  5. ATENOLOL. [Concomitant]
     Active Substance: ATENOLOL
  6. LEVOTHYROXINE. [Concomitant]
     Active Substance: LEVOTHYROXINE

REACTIONS (1)
  - Diarrhoea [Recovered/Resolved]

NARRATIVE: CASE EVENT DATE: 20180119
